FAERS Safety Report 6522028-8 (Version None)
Quarter: 2009Q4

REPORT INFORMATION
  Report Type: 
  Country: None (occurrence: None)
  Receive Date: 20091230
  Receipt Date: 20091216
  Transmission Date: 20100525
  Serious: Yes (Death)
  Sender: FDA-Public Use
  Company Number: CH-PFIZER INC-2009310677

PATIENT
  Age: 97 Year
  Sex: Female
  Weight: 45 kg

DRUGS (9)
  1. NORVASC [Suspect]
     Indication: ESSENTIAL HYPERTENSION
     Dosage: 10 MG, 1X/DAY
     Route: 048
  2. DOXIUM [Suspect]
     Indication: MACULAR DEGENERATION
     Dosage: 1000 MG, 1X/DAY
     Route: 048
     Dates: start: 20090116, end: 20090320
  3. TORSEMIDE [Suspect]
     Indication: MYOCARDIAL ISCHAEMIA
     Dosage: 7.5 MG, 1X/DAY
     Route: 048
  4. ACETYLSALICYLIC ACID [Suspect]
     Dosage: UNK
     Route: 048
  5. DAFALGAN [Suspect]
     Dosage: 500 MG, 2X/DAY
     Route: 048
  6. PANTOPRAZOLE [Suspect]
     Dosage: 40 MG, 1X/DAY
     Route: 048
  7. BELOC ZOK [Concomitant]
     Indication: ESSENTIAL HYPERTENSION
     Dosage: 100 MG, 1X/DAY
     Route: 048
  8. CALCIMAGON-D3 [Concomitant]
     Route: 048
  9. TRANSIPEG [Concomitant]
     Route: 048

REACTIONS (3)
  - ANAEMIA [None]
  - INFECTION [None]
  - LEUKOPENIA [None]
